FAERS Safety Report 23946826 (Version 1)
Quarter: 2024Q2

REPORT INFORMATION
  Report Type: Spontaneous
  Country: US (occurrence: US)
  Receive Date: 20240606
  Receipt Date: 20240606
  Transmission Date: 20240716
  Serious: No
  Sender: FDA-Public Use
  Company Number: US-MYLANLABS-2024M1047841

PATIENT
  Sex: Female

DRUGS (1)
  1. ESTRADIOL [Suspect]
     Active Substance: ESTRADIOL
     Indication: Vulvovaginal dryness
     Dosage: 1 GRAM, BIWEEKLY (TWICE A WEEK)
     Route: 067
     Dates: start: 2022

REACTIONS (2)
  - Expired product administered [Unknown]
  - Device leakage [Unknown]
